FAERS Safety Report 8378607-9 (Version None)
Quarter: 2012Q2

REPORT INFORMATION
  Report Type: 
  Country: None (occurrence: None)
  Receive Date: 20120522
  Receipt Date: 20110919
  Transmission Date: 20120825
  Serious: No
  Sender: FDA-Public Use
  Company Number: US-ASTRAZENECA-2012SE18864

PATIENT

DRUGS (1)
  1. OMEPRAZOLE [Suspect]
     Route: 048

REACTIONS (5)
  - BODY HEIGHT DECREASED [None]
  - ADVERSE EVENT [None]
  - PAIN IN EXTREMITY [None]
  - BRONCHITIS [None]
  - PRODUCTIVE COUGH [None]
